FAERS Safety Report 18322463 (Version 1)
Quarter: 2020Q3

REPORT INFORMATION
  Report Type: Spontaneous
  Country: FR (occurrence: FR)
  Receive Date: 20200929
  Receipt Date: 20200929
  Transmission Date: 20201103
  Serious: Yes (Hospitalization)
  Sender: FDA-Public Use
  Company Number: FR-TEVA-2020-FR-1831269

PATIENT
  Age: 79 Year
  Sex: Male
  Weight: 106 kg

DRUGS (12)
  1. OXYCODONE [Concomitant]
     Active Substance: OXYCODONE
  2. LEVOFLOXACINE HEMIHYDRATE [Suspect]
     Active Substance: LEVOFLOXACIN
     Indication: INFECTION
     Dosage: 500MILLIGRAM
     Route: 048
     Dates: start: 20200805, end: 20200821
  3. FUROSEMIDE. [Concomitant]
     Active Substance: FUROSEMIDE
  4. LANSOPRAZOLE. [Concomitant]
     Active Substance: LANSOPRAZOLE
  5. LAROXYL 40 MG/ML, SOLUTION BUVABLE [Suspect]
     Active Substance: AMITRIPTYLINE HYDROCHLORIDE
     Indication: NERVOUS SYSTEM DISORDER
     Dosage: 20GTT
     Route: 048
     Dates: start: 20200812, end: 20200820
  6. COLCHICINE OPOCALCIUM 1 MG, COMPRIME [Suspect]
     Active Substance: COLCHICINE
     Indication: HYPERURICAEMIA
     Dosage: 0.5MILLIGRAM
     Route: 048
     Dates: start: 20200813, end: 20200821
  7. CETIRIZINE (DICHLORHYDRATE DE) [Suspect]
     Active Substance: CETIRIZINE HYDROCHLORIDE
     Indication: HYPERSENSITIVITY
     Dosage: 10MILIGRAM
     Route: 048
     Dates: end: 20200821
  8. DIFFU K [Concomitant]
     Active Substance: POTASSIUM CHLORIDE
  9. RIVAROXABAN [Concomitant]
     Active Substance: RIVAROXABAN
  10. ATORVASTATINE [Concomitant]
     Active Substance: ATORVASTATIN
  11. RIFADINE 300 MG, GELULE [Suspect]
     Active Substance: RIFAMPIN
     Indication: INFECTION
     Dosage: 600MILLIGRAM
     Route: 048
     Dates: start: 20200805, end: 20200821
  12. PIPERACILLINE TAZOBACTAM MYLAN [Suspect]
     Active Substance: PIPERACILLIN SODIUM\TAZOBACTAM SODIUM
     Indication: INFECTION
     Dosage: 16GRAM
     Route: 042
     Dates: start: 20200803, end: 20200821

REACTIONS (2)
  - Thrombocytopenic purpura [Unknown]
  - Immune thrombocytopenia [Recovered/Resolved]

NARRATIVE: CASE EVENT DATE: 20200820
